FAERS Safety Report 10210440 (Version 2)
Quarter: 2014Q4

REPORT INFORMATION
  Report Type: Spontaneous
  Country: GB (occurrence: None)
  Receive Date: 20140528
  Receipt Date: 20141024
  Transmission Date: 20150528
  Serious: Yes (Other)
  Sender: FDA-Public Use
  Company Number: 2354496

PATIENT
  Age: 62 Year
  Sex: Male

DRUGS (8)
  1. AMISULPRIDE [Concomitant]
     Active Substance: AMISULPRIDE
  2. CLOZAPINE. [Suspect]
     Active Substance: CLOZAPINE
     Indication: SCHIZOPHRENIA
     Dosage: 100MG MANE, 100MG AT LUNCH, 200MG NOCTE
     Route: 048
     Dates: start: 20041011
  3. DOXORUBICIN HYDROCHLORIDE. [Suspect]
     Active Substance: DOXORUBICIN HYDROCHLORIDE
     Indication: SARCOMA METASTATIC
     Dosage: A CYCLE EVERY 3 WEEKS
     Dates: start: 20131125
  4. PREDNISOLONE. [Suspect]
     Active Substance: PREDNISOLONE
     Indication: SARCOMA METASTATIC
     Dosage: A CYCLE EVERY 3 WEEKS
     Dates: start: 20131125
  5. GRANULOCYTE COLONY STIMULATING FACTOR [Concomitant]
     Active Substance: GRANULOCYTE COLONY-STIMULATING FACTOR NOS
  6. CYCLOPHOSPHAMIDE. [Suspect]
     Active Substance: CYCLOPHOSPHAMIDE
     Indication: SARCOMA METASTATIC
     Dosage: A CYCLE EVERY 3 WEEKS
     Dates: start: 20131125
  7. VINCRISTINE SULFATE. [Suspect]
     Active Substance: VINCRISTINE SULFATE
     Indication: SARCOMA METASTATIC
     Dosage: A CYCLE EVERY 3 WEEKS
     Dates: start: 20131125
  8. FLUOXETINE [Concomitant]
     Active Substance: FLUOXETINE\FLUOXETINE HYDROCHLORIDE

REACTIONS (9)
  - Neutropenia [None]
  - Laboratory test abnormal [None]
  - White blood cell count increased [None]
  - Sarcoma metastatic [None]
  - Leukopenia [None]
  - Neutrophil count increased [None]
  - Product use issue [None]
  - Sarcoma [None]
  - Lung neoplasm malignant [None]

NARRATIVE: CASE EVENT DATE: 201310
